FAERS Safety Report 25307303 (Version 1)
Quarter: 2025Q2

REPORT INFORMATION
  Report Type: Report from Study
  Country: HN (occurrence: HN)
  Receive Date: 20250513
  Receipt Date: 20250513
  Transmission Date: 20250717
  Serious: Yes (Disabling)
  Sender: NOVARTIS
  Company Number: HN-002147023-NVSC2025HN076622

PATIENT
  Age: 70 Year
  Sex: Female

DRUGS (1)
  1. EXFORGE HCT [Suspect]
     Active Substance: AMLODIPINE BESYLATE\HYDROCHLOROTHIAZIDE\VALSARTAN
     Indication: Hypertension
     Dosage: UNK UNK, QD (5/160/25 MG)
     Route: 048
     Dates: start: 2022, end: 202410

REACTIONS (3)
  - Inflammation [Recovered/Resolved]
  - Gait inability [Unknown]
  - Discomfort [Unknown]

NARRATIVE: CASE EVENT DATE: 20240601
